FAERS Safety Report 4265843-6 (Version None)
Quarter: 2004Q1

REPORT INFORMATION
  Report Type: 
  Country: None (occurrence: None)
  Receive Date: 20040107
  Receipt Date: 20040107
  Transmission Date: 20041129
  Serious: Yes (Other)
  Sender: FDA-Public Use
  Company Number: None

PATIENT
  Age: 35 Year
  Sex: Female
  Weight: 63.5036 kg

DRUGS (1)
  1. ZOSYN [Suspect]
     Dosage: 3.375G IV Q6H
     Route: 042
     Dates: start: 20031020, end: 20031031

REACTIONS (3)
  - FLUSHING [None]
  - PRURITUS [None]
  - RASH MACULO-PAPULAR [None]
